FAERS Safety Report 19859875 (Version 1)
Quarter: 2021Q3

REPORT INFORMATION
  Report Type: Report from Study
  Country: DE (occurrence: DE)
  Receive Date: 20210920
  Receipt Date: 20210920
  Transmission Date: 20211014
  Serious: Yes (Hospitalization, Other)
  Sender: FDA-Public Use
  Company Number: DE-TAKEDA-DE201814191

PATIENT
  Age: 81 Year
  Sex: Female
  Weight: 79 kg

DRUGS (20)
  1. TEDUGLUTIDE [Suspect]
     Active Substance: TEDUGLUTIDE
     Indication: SHORT-BOWEL SYNDROME
     Dosage: 0.05 MG/KG (TOTAL DOSE 4 MG), 7 DOSES PER WEEK
     Route: 065
     Dates: start: 20141022
  2. TEDUGLUTIDE [Suspect]
     Active Substance: TEDUGLUTIDE
     Dosage: 0.05 UNK
     Route: 065
     Dates: start: 20180523
  3. MAGNO SANOL UNO [Concomitant]
     Indication: MAGNESIUM DEFICIENCY
     Dosage: 150 MILLIGRAM, TID
     Route: 048
  4. CALCIMED D3 [Concomitant]
     Active Substance: CALCIUM CARBONATE\CHOLECALCIFEROL
     Indication: VITAMIN SUPPLEMENTATION
     Dosage: 0.03 MILLIGRAM, TID
     Route: 048
     Dates: start: 20190309
  5. TEDUGLUTIDE [Suspect]
     Active Substance: TEDUGLUTIDE
     Indication: SHORT-BOWEL SYNDROME
     Dosage: 0.05 MG/KG (TOTAL DOSE 4 MG), 7 DOSES PER WEEK
     Route: 065
     Dates: start: 20141022
  6. TEDUGLUTIDE [Suspect]
     Active Substance: TEDUGLUTIDE
     Dosage: 0.03 UNK
     Route: 065
     Dates: start: 201802, end: 20180523
  7. TEDUGLUTIDE [Suspect]
     Active Substance: TEDUGLUTIDE
     Indication: SHORT-BOWEL SYNDROME
     Dosage: 0.05 MG/KG (TOTAL DOSE 4 MG), 7 DOSES PER WEEK
     Route: 065
     Dates: start: 20141022
  8. TEDUGLUTIDE [Suspect]
     Active Substance: TEDUGLUTIDE
     Dosage: 0.05 UNK
     Route: 065
     Dates: start: 20180523
  9. TEDUGLUTIDE [Suspect]
     Active Substance: TEDUGLUTIDE
     Dosage: 0.05 UNK
     Route: 065
     Dates: start: 20180523
  10. APIXABAN [Concomitant]
     Active Substance: APIXABAN
     Indication: ATRIAL FIBRILLATION
     Route: 065
  11. FOLSAN [Concomitant]
     Active Substance: FOLIC ACID
     Indication: HYPERCHROMIC ANAEMIA
     Route: 065
  12. TEDUGLUTIDE [Suspect]
     Active Substance: TEDUGLUTIDE
     Indication: SHORT-BOWEL SYNDROME
     Dosage: 0.05 MG/KG (TOTAL DOSE 4 MG), 7 DOSES PER WEEK
     Route: 065
     Dates: start: 20141022
  13. TEDUGLUTIDE [Suspect]
     Active Substance: TEDUGLUTIDE
     Dosage: 0.03 UNK
     Route: 065
     Dates: start: 201802, end: 20180523
  14. DEVIT [Concomitant]
     Indication: VITAMIN D DEFICIENCY
     Dosage: 0.06 MILLIGRAM, QD
     Route: 048
     Dates: start: 202001
  15. TEDUGLUTIDE [Suspect]
     Active Substance: TEDUGLUTIDE
     Dosage: 0.03 UNK
     Route: 065
     Dates: start: 201802, end: 20180523
  16. TEDUGLUTIDE [Suspect]
     Active Substance: TEDUGLUTIDE
     Dosage: 0.03 UNK
     Route: 065
     Dates: start: 201802, end: 20180523
  17. TEDUGLUTIDE [Suspect]
     Active Substance: TEDUGLUTIDE
     Dosage: 0.05 UNK
     Route: 065
     Dates: start: 20180523
  18. PANTOPRAZOL                        /01263201/ [Concomitant]
     Active Substance: PANTOPRAZOLE
     Indication: ANTACID THERAPY
     Route: 065
  19. DEKRISTOL [Concomitant]
     Active Substance: CHOLECALCIFEROL
     Indication: VITAMIN D DEFICIENCY
     Route: 065
  20. FOSFOMYCIN [Concomitant]
     Active Substance: FOSFOMYCIN
     Indication: URINARY TRACT INFECTION
     Dosage: UNK, SINGLE
     Route: 065
     Dates: start: 201905, end: 201905

REACTIONS (1)
  - Myocarditis [Not Recovered/Not Resolved]

NARRATIVE: CASE EVENT DATE: 201705
